FAERS Safety Report 22344356 (Version 1)
Quarter: 2023Q2

REPORT INFORMATION
  Report Type: Spontaneous
  Country: BR (occurrence: BR)
  Receive Date: 20230519
  Receipt Date: 20230519
  Transmission Date: 20230721
  Serious: Yes (Hospitalization, Disabling)
  Sender: FDA-Public Use
  Company Number: BR-Waylis Therapeutics LLC-ATNAHS20230501505

PATIENT
  Age: 83 Year
  Sex: Female

DRUGS (1)
  1. VALIUM [Suspect]
     Active Substance: DIAZEPAM
     Indication: Nervousness
     Dosage: HALF A TABLET A DAY AT NIGHT
     Dates: start: 1957

REACTIONS (6)
  - Arterial occlusive disease [Unknown]
  - Gait inability [Recovered/Resolved]
  - Memory impairment [Unknown]
  - Fatigue [Recovered/Resolved]
  - Nervousness [Unknown]
  - Product use in unapproved indication [Unknown]
